FAERS Safety Report 16253367 (Version 2)
Quarter: 2019Q2

REPORT INFORMATION
  Report Type: Report from Study
  Country: None (occurrence: US)
  Receive Date: 20190430
  Receipt Date: 20190626
  Transmission Date: 20190711
  Serious: Yes (Other)
  Sender: FDA-Public Use
  Company Number: US-ABBVIE-19K-163-2762161-00

PATIENT
  Age: 42 Year
  Sex: Female
  Weight: 115.77 kg

DRUGS (1)
  1. HUMIRA [Suspect]
     Active Substance: ADALIMUMAB
     Indication: RHEUMATOID ARTHRITIS
     Route: 058
     Dates: start: 2019

REACTIONS (2)
  - Blindness [Not Recovered/Not Resolved]
  - Nervous system disorder [Not Recovered/Not Resolved]
